FAERS Safety Report 9612419 (Version 1)
Quarter: 2013Q4

REPORT INFORMATION
  Report Type: Spontaneous
  Country: US (occurrence: US)
  Receive Date: 20131010
  Receipt Date: 20131010
  Transmission Date: 20140711
  Serious: No
  Sender: FDA-Public Use
  Company Number: US-PFIZER INC-2013288329

PATIENT
  Age: 59 Year
  Sex: Female
  Weight: 43.08 kg

DRUGS (4)
  1. SUMATRIPTAN SUCCINATE [Suspect]
     Indication: MIGRAINE
     Dosage: 100 MG, 1X/DAY AS NEEDED
     Route: 065
  2. PAROXETINE [Suspect]
     Indication: DEPRESSION
     Dosage: 10 MG, 1X/DAY AS NEEDED
     Route: 065
  3. PAROXETINE [Suspect]
     Dosage: 20 MG, 1X/DAY AS NEEDED
     Route: 065
     Dates: end: 20130919
  4. VALIUM [Concomitant]
     Indication: PRODUCT USED FOR UNKNOWN INDICATION
     Dosage: UNK
     Route: 065

REACTIONS (2)
  - Weight decreased [Not Recovered/Not Resolved]
  - Migraine [Not Recovered/Not Resolved]
